FAERS Safety Report 8733848 (Version 4)
Quarter: 2013Q1

REPORT INFORMATION
  Report Type: Spontaneous
  Country: US (occurrence: None)
  Receive Date: 20120802
  Receipt Date: 20130322
  Transmission Date: 20140127
  Serious: Yes (Hospitalization, Other)
  Sender: FDA-Public Use
  Company Number: JPI-P-022855

PATIENT
  Age: 51 Year
  Sex: Female

DRUGS (1)
  1. XYREM [Suspect]
     Dosage: 9 GM (4.5 GM,2 IN 1 D),ORAL
     Route: 048
     Dates: start: 20090701

REACTIONS (3)
  - TOOTH DISORDER [None]
  - Tooth infection [None]
  - Infection [None]
